FAERS Safety Report 13921623 (Version 1)
Quarter: 2017Q3

REPORT INFORMATION
  Report Type: Spontaneous
  Country: US (occurrence: None)
  Receive Date: 20170830
  Receipt Date: 20170830
  Transmission Date: 20171127
  Serious: Yes (Life-Threatening)
  Sender: FDA-Public Use
  Company Number: None

PATIENT
  Age: 82 Year
  Sex: Female
  Weight: 53.07 kg

DRUGS (10)
  1. PILOCARPINE. [Concomitant]
     Active Substance: PILOCARPINE
  2. VITAMIN B12 [Suspect]
     Active Substance: CYANOCOBALAMIN
  3. LISINOPRIL. [Concomitant]
     Active Substance: LISINOPRIL
  4. MAGNESIUM [Concomitant]
     Active Substance: MAGNESIUM
  5. POTASSIUM [Concomitant]
     Active Substance: POTASSIUM
  6. XOPENEX [Concomitant]
     Active Substance: LEVALBUTEROL HYDROCHLORIDE
  7. HYDROCODONE BITARTRATE AND ACETAMINOPHEN [Suspect]
     Active Substance: ACETAMINOPHEN\HYDROCODONE BITARTRATE
     Indication: STENOSIS
     Route: 048
     Dates: start: 20170720, end: 20170811
  8. INHALER [Concomitant]
     Active Substance: UNSPECIFIED INGREDIENT
  9. ZIOPTAN [Concomitant]
     Active Substance: TAFLUPROST
  10. VITAMIN D [Concomitant]
     Active Substance: CHOLECALCIFEROL

REACTIONS (11)
  - Product quality issue [None]
  - Oral mucosal eruption [None]
  - Oropharyngeal blistering [None]
  - Pruritus [None]
  - Oral mucosal blistering [None]
  - Headache [None]
  - Fatigue [None]
  - Cough [None]
  - Somnolence [None]
  - Nausea [None]
  - Parosmia [None]

NARRATIVE: CASE EVENT DATE: 20170720
